FAERS Safety Report 10901480 (Version 1)
Quarter: 2015Q1

REPORT INFORMATION
  Report Type: Spontaneous
  Country: US (occurrence: None)
  Receive Date: 20150303
  Receipt Date: 20150303
  Transmission Date: 20150721
  Serious: Yes (Other)
  Sender: FDA-Public Use
  Company Number: None

PATIENT
  Age: 56 Year
  Sex: Female
  Weight: 82.56 kg

DRUGS (19)
  1. CEFDINIR. [Concomitant]
     Active Substance: CEFDINIR
  2. BLACK COHOSH 40 MG [Concomitant]
  3. TURMERIC CAPSULE [Concomitant]
  4. VIT B 50 COMPLEX [Concomitant]
  5. ROBITUSSIN DM/MUCINEX DM [Concomitant]
  6. RICOLA ORIGINAL FORMULA LOZENGES [Concomitant]
  7. CEPACOL THROAT LOZENGES [Concomitant]
  8. WALGREENS SALT PACKET [Concomitant]
  9. GLUCOSAMINE 500 MG [Concomitant]
  10. ESTHER C 500 MG [Concomitant]
  11. PROMETHAZINE W/CODEINE [Concomitant]
  12. OMEGA 3 SUPPLEMENT [Concomitant]
  13. NETI POT WITH DISTILLED WATER [Concomitant]
  14. IBUPROFEN. [Concomitant]
     Active Substance: IBUPROFEN
  15. FLONASE [Suspect]
     Active Substance: FLUTICASONE PROPIONATE
     Indication: UPPER-AIRWAY COUGH SYNDROME
     Dates: start: 20150224, end: 20150228
  16. CALCIUM/MAGNESIUM/ZINC SUPPLEMENT 500/250/15 [Concomitant]
  17. D3 2000 [Concomitant]
  18. AFRIN SEVERE CONGESTION NASAL SPRAY [Concomitant]
  19. SALT WATER GARGLE [Concomitant]

REACTIONS (4)
  - Ageusia [None]
  - Anosmia [None]
  - Decreased appetite [None]
  - Insomnia [None]

NARRATIVE: CASE EVENT DATE: 20150224
